FAERS Safety Report 5851637-4 (Version None)
Quarter: 2008Q3

REPORT INFORMATION
  Report Type: 
  Country: None (occurrence: None)
  Receive Date: 20080820
  Receipt Date: 20080808
  Transmission Date: 20090109
  Serious: Yes (Hospitalization)
  Sender: FDA-Public Use
  Company Number: JP-ELI_LILLY_AND_COMPANY-JP200806005118

PATIENT
  Age: 65 Year
  Sex: Male

DRUGS (21)
  1. HUMALOG [Suspect]
     Indication: TYPE 2 DIABETES MELLITUS
     Dosage: 6 IU, 2/D
     Route: 058
     Dates: start: 20071005, end: 20071025
  2. HUMALOG [Suspect]
     Dosage: 7 IU, 2/D
     Route: 058
     Dates: start: 20071026, end: 20071209
  3. HUMALOG [Suspect]
     Dosage: 10 IU, EACH MORNING
     Route: 058
     Dates: start: 20071210, end: 20071212
  4. HUMALOG [Suspect]
     Dosage: 7 IU, EACH EVENING
     Route: 058
     Dates: start: 20071210, end: 20071212
  5. HUMALOG [Suspect]
     Dosage: 13 IU, EACH MORNING
     Route: 058
     Dates: start: 20071213, end: 20071216
  6. HUMALOG [Suspect]
     Dosage: 3 IU, EACH EVENING
     Route: 058
     Dates: start: 20071213, end: 20071216
  7. HUMALOG [Suspect]
     Indication: TYPE 2 DIABETES MELLITUS
     Dosage: 8 IU, EACH MORNING
     Route: 058
     Dates: start: 20080701
  8. HUMALOG [Suspect]
     Dosage: 3 IU, DAILY (1/D)
     Route: 058
     Dates: start: 20080701
  9. HUMALOG [Suspect]
     Dosage: 3 IU, EACH EVENING
     Route: 058
     Dates: start: 20080701
  10. HUMALOG [Suspect]
     Dosage: 28 IU, EACH MORNING
     Route: 058
     Dates: start: 20080101
  11. HUMALOG [Suspect]
     Dosage: 17 IU, DAILY (1/D)
     Route: 058
     Dates: start: 20080101
  12. HUMALOG [Suspect]
     Dosage: 6 IU, EACH EVENING
     Route: 058
     Dates: start: 20080101
  13. NOVOLOG MIX 70/30 [Concomitant]
     Indication: TYPE 2 DIABETES MELLITUS
     Dosage: UNK, UNK
     Route: 058
     Dates: start: 20070406
  14. NOVOLOG MIX 70/30 [Concomitant]
     Dosage: 6 IU, 2/D
     Route: 058
     Dates: start: 20070907, end: 20071004
  15. NOVOLIN R [Concomitant]
     Indication: TYPE 2 DIABETES MELLITUS
     Dosage: 3 IU, EACH MORNING
     Route: 058
     Dates: start: 20071217, end: 20080630
  16. NOVOLIN R [Concomitant]
     Dosage: 2 IU, DAILY (1/D)
     Route: 058
     Dates: start: 20071217, end: 20080630
  17. NOVOLIN R [Concomitant]
     Dosage: 2 IU, EACH EVENING
     Route: 058
     Dates: start: 20071217, end: 20080630
  18. NOVOLIN N [Concomitant]
     Indication: TYPE 2 DIABETES MELLITUS
     Dosage: 2 IU, DAILY (1/D)
     Route: 058
     Dates: start: 20071221, end: 20080616
  19. LANTUS [Concomitant]
     Indication: TYPE 2 DIABETES MELLITUS
     Dosage: 5 IU, DAILY (1/D)
     Route: 058
     Dates: start: 20080617
  20. LANTUS [Concomitant]
     Dosage: 3 IU, EACH MORNING
     Route: 058
     Dates: start: 20080701
  21. LANTUS [Concomitant]
     Dosage: 16 IU, EACH MORNING
     Route: 058
     Dates: start: 20080101

REACTIONS (2)
  - ANTI-INSULIN ANTIBODY POSITIVE [None]
  - HYPOGLYCAEMIA [None]
